FAERS Safety Report 10011792 (Version 1)
Quarter: 2014Q1

REPORT INFORMATION
  Report Type: Spontaneous
  Country: IL (occurrence: IL)
  Receive Date: 20140314
  Receipt Date: 20140314
  Transmission Date: 20141002
  Serious: Yes (Other)
  Sender: FDA-Public Use
  Company Number: IL-BRISTOL-MYERS SQUIBB COMPANY-20410577

PATIENT
  Age: 70 Year
  Sex: Male

DRUGS (7)
  1. ONGLYZA TABS 5 MG [Suspect]
     Indication: TYPE 2 DIABETES MELLITUS
     Route: 048
     Dates: start: 20130519, end: 20140303
  2. PLAVIX [Concomitant]
     Route: 048
  3. GLUCOPHAGE [Concomitant]
     Route: 048
  4. NORMITEN [Concomitant]
     Route: 048
  5. AMARYL [Concomitant]
     Route: 048
  6. CRESTOR [Concomitant]
     Route: 048
  7. ENALAPRIL [Concomitant]
     Route: 048

REACTIONS (1)
  - Left ventricular dysfunction [Unknown]
